FAERS Safety Report 4743239-8 (Version None)
Quarter: 2005Q3

REPORT INFORMATION
  Report Type: 
  Country: None (occurrence: None)
  Receive Date: 20050811
  Receipt Date: 20050726
  Transmission Date: 20060218
  Serious: Yes (Other)
  Sender: FDA-Public Use
  Company Number: 2005BI014249

PATIENT
  Age: 42 Year
  Sex: Male
  Weight: 68.4932 kg

DRUGS (3)
  1. AVONEX [Suspect]
     Indication: MULTIPLE SCLEROSIS
     Dosage: 20 UG; QW; IM
     Route: 030
     Dates: start: 19990101, end: 20030101
  2. AVONEX [Suspect]
     Indication: MULTIPLE SCLEROSIS
     Dosage: 30 UG;QW; IM
     Route: 030
     Dates: start: 20030101, end: 20030101
  3. AVONEX [Suspect]
     Indication: MULTIPLE SCLEROSIS
     Dosage: 30 UG; QW ; IM
     Route: 030
     Dates: start: 20030101

REACTIONS (4)
  - PRURITUS GENERALISED [None]
  - RASH GENERALISED [None]
  - SWOLLEN TONGUE [None]
  - URTICARIA GENERALISED [None]
